FAERS Safety Report 10103040 (Version 1)
Quarter: 2014Q2

REPORT INFORMATION
  Report Type: Spontaneous
  Country: US (occurrence: US)
  Receive Date: 20140424
  Receipt Date: 20140424
  Transmission Date: 20141212
  Serious: Yes (Hospitalization)
  Sender: FDA-Public Use
  Company Number: US-BRISTOL-MYERS SQUIBB COMPANY-20094702

PATIENT
  Age: 82 Year
  Sex: Female

DRUGS (1)
  1. ELIQUIS [Suspect]
     Dosage: DOSED UPPED TO 5 MG. REINTRODUCED?2.5 MG

REACTIONS (2)
  - Transient ischaemic attack [Unknown]
  - Rectal haemorrhage [Unknown]
